FAERS Safety Report 25523694 (Version 1)
Quarter: 2025Q3

REPORT INFORMATION
  Report Type: Spontaneous
  Country: US (occurrence: None)
  Receive Date: 20250703
  Receipt Date: 20250703
  Transmission Date: 20251021
  Serious: No
  Sender: FDA-CTU
  Company Number: None

PATIENT
  Age: 40 Year
  Sex: Female
  Weight: 65.25 kg

DRUGS (3)
  1. AIMOVIG [Suspect]
     Active Substance: ERENUMAB-AOOE
     Indication: Migraine
     Dates: start: 20250402, end: 20250602
  2. SERTRALINE [Concomitant]
     Active Substance: SERTRALINE HYDROCHLORIDE
  3. sprintec oral [Concomitant]

REACTIONS (6)
  - Injection site reaction [None]
  - Injection site bruising [None]
  - Skin tightness [None]
  - Feeling hot [None]
  - Injection site pain [None]
  - Injection site pruritus [None]
